FAERS Safety Report 8125691-3 (Version None)
Quarter: 2012Q1

REPORT INFORMATION
  Report Type: 
  Country: None (occurrence: None)
  Receive Date: 20120206
  Receipt Date: 20120126
  Transmission Date: 20120608
  Serious: Yes (Other)
  Sender: FDA-Public Use
  Company Number: 2012AP000230

PATIENT
  Age: 43 Year
  Sex: Male

DRUGS (4)
  1. ROSUVASTATIN [Concomitant]
  2. DILTIAZEM HYDROCHLORIDE [Suspect]
     Indication: HYPERTENSION
     Dosage: 1 CAP;CAP;PO;QD
     Route: 048
     Dates: start: 20111223
  3. AMLODIPINE [Concomitant]
  4. RAMIPRIL [Concomitant]

REACTIONS (1)
  - MANIA [None]
